FAERS Safety Report 9109167 (Version 3)
Quarter: 2013Q2

REPORT INFORMATION
  Report Type: Spontaneous
  Country: AU (occurrence: AU)
  Receive Date: 20130222
  Receipt Date: 20130409
  Transmission Date: 20140414
  Serious: Yes (Other)
  Sender: FDA-Public Use
  Company Number: AU-GLAXOSMITHKLINE-B0869891A

PATIENT
  Age: 63 Year
  Sex: Male
  Weight: 89 kg

DRUGS (6)
  1. VOTRIENT [Suspect]
     Indication: METASTATIC RENAL CELL CARCINOMA
     Dosage: 200MG PER DAY
     Route: 065
     Dates: start: 20130221
  2. VOTRIENT [Suspect]
     Indication: METASTATIC RENAL CELL CARCINOMA
     Dosage: 400MG PER DAY
     Route: 065
     Dates: start: 20121206, end: 20130205
  3. VOTRIENT [Suspect]
     Indication: METASTATIC RENAL CELL CARCINOMA
     Dosage: 800MG PER DAY
     Route: 065
     Dates: start: 20121002, end: 20121129
  4. PANTOPRAZOLE [Concomitant]
     Indication: ILL-DEFINED DISORDER
     Route: 065
  5. OXYCONTIN [Concomitant]
     Indication: BONE PAIN
     Dosage: 10MG TWICE PER DAY
     Route: 065
  6. ENDONE [Concomitant]
     Indication: BONE PAIN
     Dosage: 5MG AS REQUIRED
     Route: 065

REACTIONS (5)
  - Bone marrow failure [Not Recovered/Not Resolved]
  - Diarrhoea [Recovering/Resolving]
  - Platelet count decreased [Unknown]
  - Thrombocytopenia [Unknown]
  - Neutropenia [Unknown]
